FAERS Safety Report 6148093-8 (Version None)
Quarter: 2009Q2

REPORT INFORMATION
  Report Type: 
  Country: None (occurrence: None)
  Receive Date: 20090408
  Receipt Date: 20090401
  Transmission Date: 20091009
  Serious: Yes (Other)
  Sender: FDA-Public Use
  Company Number: B0569134A

PATIENT
  Sex: Female

DRUGS (1)
  1. ZINACEF [Suspect]
     Route: 042
     Dates: start: 20081229, end: 20081229

REACTIONS (3)
  - BRONCHOSPASM [None]
  - DRUG EXPOSURE DURING PREGNANCY [None]
  - URTICARIA [None]
